FAERS Safety Report 8264545-9 (Version None)
Quarter: 2012Q2

REPORT INFORMATION
  Report Type: 
  Country: None (occurrence: None)
  Receive Date: 20120406
  Receipt Date: 20120329
  Transmission Date: 20120825
  Serious: Yes (Death, Life-Threatening, Hospitalization, Other)
  Sender: FDA-Public Use
  Company Number: GB-UCBSA-050137

PATIENT
  Sex: Male

DRUGS (8)
  1. ZOPICLONE [Concomitant]
     Dosage: AT NIGHT
  2. OLANZAPINE [Concomitant]
     Dates: end: 20110101
  3. MIRTAZAPINE [Concomitant]
     Dates: end: 20110101
  4. HALOPERIDOL [Concomitant]
  5. KEPPRA [Suspect]
     Indication: CONVULSION
     Route: 048
     Dates: start: 20110401, end: 20110601
  6. CLONAZEPEN [Concomitant]
     Dates: start: 20110101, end: 20110101
  7. LORAZAPAN [Concomitant]
     Dosage: PRN
     Dates: end: 20110101
  8. KEPPRA [Suspect]
     Indication: MYOCLONUS
     Route: 048
     Dates: start: 20110401, end: 20110601

REACTIONS (9)
  - MYOCLONUS [None]
  - AGITATION [None]
  - CONFUSIONAL STATE [None]
  - SLEEP APNOEA SYNDROME [None]
  - AGGRESSION [None]
  - CARDIAC ARREST [None]
  - PSYCHOTIC DISORDER [None]
  - PARANEOPLASTIC SYNDROME [None]
  - NON-SMALL CELL LUNG CANCER [None]
